FAERS Safety Report 6161874-X (Version None)
Quarter: 2009Q2

REPORT INFORMATION
  Report Type: 
  Country: None (occurrence: None)
  Receive Date: 20090421
  Receipt Date: 20090417
  Transmission Date: 20091009
  Serious: Yes (Hospitalization, Disabling)
  Sender: FDA-Public Use
  Company Number: B0392367A

PATIENT
  Sex: Male
  Weight: 80 kg

DRUGS (7)
  1. ROSIGLITAZONE [Suspect]
     Route: 048
     Dates: start: 20020924, end: 20050831
  2. METFORMIN HCL [Suspect]
     Route: 048
     Dates: start: 20030619
  3. DAONIL [Concomitant]
     Dosage: 20MG PER DAY
     Route: 048
     Dates: start: 20010801
  4. XENICAL [Concomitant]
     Dosage: 120MG PER DAY
     Route: 048
     Dates: start: 20000801
  5. NORVASC [Concomitant]
     Dosage: 5MG PER DAY
     Route: 048
     Dates: start: 20020201
  6. SALOSPIR [Concomitant]
     Dosage: 100MG PER DAY
     Route: 048
     Dates: start: 20010201
  7. LIPITOR [Concomitant]
     Dosage: 10MG PER DAY
     Route: 048
     Dates: start: 20010801

REACTIONS (1)
  - MYALGIA [None]
